FAERS Safety Report 4427462-8 (Version None)
Quarter: 2004Q3

REPORT INFORMATION
  Report Type: 
  Country: None (occurrence: None)
  Receive Date: 20040812
  Receipt Date: 20420730
  Transmission Date: 20050211
  Serious: Yes (Hospitalization)
  Sender: FDA-Public Use
  Company Number: 200413788BCC

PATIENT
  Age: 52 Year
  Sex: Female
  Weight: 77.1115 kg

DRUGS (2)
  1. ALKA SELTZER PLUS NIGHT TIME COLD [Suspect]
     Indication: INSOMNIA
     Dosage: ORAL
     Route: 048
  2. LIPITOR [Concomitant]

REACTIONS (1)
  - GASTRIC ULCER HAEMORRHAGE [None]
